FAERS Safety Report 8586825 (Version 5)
Quarter: 2012Q4

REPORT INFORMATION
  Report Type: 
  Country: HK (occurrence: HK)
  Receive Date: 20120530
  Receipt Date: 20121219
  Transmission Date: 20130627
  Serious: Yes (Death, Hospitalization)
  Sender: FDA-Public Use
  Company Number: HK-PFIZER INC-2012127706

PATIENT
  Age: 49 Year
  Sex: Female
  Weight: 57.8 kg

DRUGS (28)
  1. CRIZOTINIB [Suspect]
     Indication: NON-SMALL CELL LUNG CANCER
     Dosage: 250 mg, 2x/day
     Dates: start: 20120424, end: 20120627
  2. TRAMADOL [Concomitant]
     Indication: PAIN
     Dosage: UNK
     Route: 048
     Dates: start: 20120422, end: 20120627
  3. TRAMADOL [Concomitant]
     Dosage: UNK
     Route: 048
     Dates: start: 20120422, end: 20120627
  4. ENZYPLEX [Concomitant]
     Indication: APPETITE DISORDER
     Dosage: UNK
     Route: 048
     Dates: start: 20120422, end: 20120627
  5. ENZYPLEX [Concomitant]
     Dosage: UNK
     Route: 048
     Dates: start: 20120422, end: 20120627
  6. ALDACTONE [Concomitant]
     Indication: ASCITES
     Dosage: UNK
     Route: 048
     Dates: start: 20120516, end: 20120615
  7. COLACE [Concomitant]
     Indication: CONSTIPATION
     Dosage: UNK
     Route: 048
     Dates: start: 20120516, end: 20120627
  8. COLACE [Concomitant]
     Dosage: UNK
     Route: 048
     Dates: start: 20120516, end: 20120627
  9. LACTULOSE [Concomitant]
     Indication: CONSTIPATION
     Dosage: UNK
     Route: 048
     Dates: start: 20120509
  10. SENOKOT [Concomitant]
     Indication: CONSTIPATION
     Dosage: UNK
     Route: 048
     Dates: start: 20120429, end: 20120627
  11. SENOKOT [Concomitant]
     Dosage: UNK
     Route: 048
     Dates: start: 20120429, end: 20120627
  12. PREDNISOLONE [Concomitant]
     Indication: HEPATIC PAIN
     Dosage: UNK
     Route: 048
     Dates: start: 20120422, end: 20120621
  13. PREDNISOLONE [Concomitant]
     Dosage: UNK
     Route: 048
     Dates: start: 20120422, end: 20120621
  14. PANTOLOC [Concomitant]
     Indication: STOMACH DISCOMFORT
     Dosage: UNK
     Route: 048
     Dates: start: 20120422, end: 20120627
  15. PANTOLOC [Concomitant]
     Dosage: UNK
     Route: 048
     Dates: start: 20120422, end: 20120627
  16. NAPROXEN [Concomitant]
     Indication: PAIN
     Dosage: UNK
     Route: 048
     Dates: start: 20120422, end: 20120627
  17. FLAGYL [Concomitant]
     Indication: INFECTION
     Dosage: UNK
     Route: 048
     Dates: start: 20120516
  18. METOCLOPRAMIDE HYDROCHLORIDE [Concomitant]
     Indication: NAUSEA
     Dosage: infusion
     Dates: start: 20120429, end: 20120627
  19. METOCLOPRAMIDE HYDROCHLORIDE [Concomitant]
     Indication: VOMITING
  20. LORAZEPAM [Concomitant]
     Indication: INSOMNIA
     Dosage: infusion
     Dates: start: 20120429, end: 20120627
  21. CHLORPHENIRAMINE MALEATE [Concomitant]
     Indication: ALLERGY
     Dosage: infusion
     Dates: start: 20120429, end: 20120627
  22. ZOPICLONE [Concomitant]
     Indication: INSOMNIA
     Dosage: UNK
     Route: 048
     Dates: start: 20120422, end: 20120627
  23. ACETAMINOPHEN [Concomitant]
     Indication: PAIN
     Dosage: UNK
     Route: 048
     Dates: start: 20120429, end: 20120627
  24. ALBUMIN [Concomitant]
     Indication: HYPOPROTEINAEMIA
     Dosage: UNK
     Dates: start: 20120619, end: 20120620
  25. ALBUMIN [Concomitant]
     Dosage: infusion
     Dates: start: 20120622, end: 20120623
  26. ALBUMIN [Concomitant]
     Dosage: UNK
     Dates: start: 20120626, end: 20120627
  27. SALBUTAMOL SULFATE [Concomitant]
     Indication: SHORTNESS OF BREATH
     Dosage: inhalation
     Dates: start: 20120627, end: 20120627
  28. LEVOFLOXACIN [Concomitant]
     Indication: PNEUMONIA
     Dosage: UNK
     Route: 042
     Dates: start: 20120627, end: 20120627

REACTIONS (3)
  - Disease progression [Fatal]
  - Non-small cell lung cancer [Fatal]
  - Ascites [Recovering/Resolving]
